FAERS Safety Report 6129203-5 (Version None)
Quarter: 2009Q1

REPORT INFORMATION
  Report Type: 
  Country: None (occurrence: None)
  Receive Date: 20090324
  Receipt Date: 20090319
  Transmission Date: 20090719
  Serious: Yes (Death)
  Sender: FDA-Public Use
  Company Number: PHHO2009FR03782

PATIENT
  Sex: Male
  Weight: 50 kg

DRUGS (2)
  1. ERL 080A ERL+TAB [Suspect]
     Indication: RENAL TRANSPLANT
     Dosage: 1440 MG/DAY
     Route: 048
     Dates: start: 20071208
  2. CORTICOSTEROIDS [Suspect]

REACTIONS (3)
  - DYSPHAGIA [None]
  - METASTASIS [None]
  - OESOPHAGEAL SQUAMOUS CELL CARCINOMA [None]
